FAERS Safety Report 25669809 (Version 1)
Quarter: 2025Q3

REPORT INFORMATION
  Report Type: Spontaneous
  Country: GB (occurrence: GB)
  Receive Date: 20250812
  Receipt Date: 20250812
  Transmission Date: 20251021
  Serious: Yes (Other)
  Sender: SANOFI AVENTIS
  Company Number: None

PATIENT

DRUGS (10)
  1. METFORMIN HYDROCHLORIDE [Suspect]
     Active Substance: METFORMIN HYDROCHLORIDE
  2. CLOZAPINE [Suspect]
     Active Substance: CLOZAPINE
  3. INSULIN GLARGINE [Suspect]
     Active Substance: INSULIN GLARGINE
  4. INSULIN ASPART [Suspect]
     Active Substance: INSULIN ASPART
  5. RYBELSUS [Suspect]
     Active Substance: SEMAGLUTIDE
     Dosage: 14 MG, QD
  6. OMACOR [Suspect]
     Active Substance: OMEGA-3-ACID ETHYL ESTERS
  7. RISPERIDONE [Concomitant]
     Active Substance: RISPERIDONE
  8. OMEGA 3 [Concomitant]
     Active Substance: CAPSAICIN
  9. SULPIRIDE [Concomitant]
     Active Substance: SULPIRIDE
  10. POLYETHYLENE GLYCOL 3350\POTASSIUM CHLORIDE\SODIUM BICARBONATE\SODIUM [Concomitant]
     Active Substance: POLYETHYLENE GLYCOL 3350\POTASSIUM CHLORIDE\SODIUM BICARBONATE\SODIUM CHLORIDE

REACTIONS (14)
  - Supraventricular tachycardia [Unknown]
  - Long QT syndrome [Unknown]
  - Tachycardia [Unknown]
  - Sleep disorder [Unknown]
  - Constipation [Unknown]
  - Agitation [Unknown]
  - Nail discolouration [Unknown]
  - Pain in extremity [Unknown]
  - Fatigue [Unknown]
  - Pain in jaw [Unknown]
  - Dyspnoea [Unknown]
  - Abdominal pain [Unknown]
  - Vomiting [Unknown]
  - Blood glucose decreased [Unknown]

NARRATIVE: CASE EVENT DATE: 20090101
